FAERS Safety Report 10027685 (Version 2)
Quarter: 2014Q1

REPORT INFORMATION
  Report Type: Spontaneous
  Country: US (occurrence: US)
  Receive Date: 20140321
  Receipt Date: 20140328
  Transmission Date: 20141002
  Serious: Yes (Other)
  Sender: FDA-Public Use
  Company Number: US-RB-063991-14

PATIENT
  Age: 85 Year
  Sex: Male

DRUGS (3)
  1. MUCINEX [Suspect]
     Indication: INCREASED UPPER AIRWAY SECRETION
     Dosage: TOOK 1 TABLET ON 12-MAR-2014.
     Route: 048
     Dates: start: 20140312
  2. ANTIBIOTIC [Concomitant]
     Indication: PRODUCT USED FOR UNKNOWN INDICATION
  3. VITAMINS [Concomitant]
     Indication: PRODUCT USED FOR UNKNOWN INDICATION

REACTIONS (4)
  - Memory impairment [Recovered/Resolved]
  - Disorientation [Recovered/Resolved]
  - Unevaluable event [Recovered/Resolved]
  - Feeling abnormal [Recovered/Resolved]
